FAERS Safety Report 5164653-5 (Version None)
Quarter: 2006Q4

REPORT INFORMATION
  Report Type: 
  Country: None (occurrence: None)
  Receive Date: 20061205
  Receipt Date: 20061124
  Transmission Date: 20070319
  Serious: Yes (Hospitalization)
  Sender: FDA-Public Use
  Company Number: FR-ELI_LILLY_AND_COMPANY-FR200611004628

PATIENT
  Age: 73 Year
  Sex: Female

DRUGS (9)
  1. FORTEO [Suspect]
     Indication: OSTEOPOROSIS
     Dosage: 20 UG, DAILY (1/D)
     Route: 058
     Dates: start: 20061103
  2. LEVOTHYROXINE SODIUM [Concomitant]
     Indication: HYPOTHYROIDISM
  3. CARDENSIEL [Concomitant]
  4. SKENAN [Concomitant]
     Indication: PAIN
  5. FUROSEMIDE [Concomitant]
  6. AMIODARONE HCL [Concomitant]
     Indication: ARRHYTHMIA
  7. ZOPICLONE [Concomitant]
  8. ASPIRIN [Concomitant]
  9. DAFLON [Concomitant]

REACTIONS (2)
  - FALL [None]
  - HUMERUS FRACTURE [None]
